FAERS Safety Report 15581113 (Version 2)
Quarter: 2018Q4

REPORT INFORMATION
  Report Type: Report from Study
  Country: IT (occurrence: IT)
  Receive Date: 20181102
  Receipt Date: 20181123
  Transmission Date: 20190205
  Serious: Yes (Other)
  Sender: FDA-Public Use
  Company Number: IT-SEATTLE GENETICS-2018SGN02782

PATIENT
  Age: 75 Year
  Sex: Male

DRUGS (2)
  1. LAMIVUDINE. [Concomitant]
     Active Substance: LAMIVUDINE
     Dosage: UNK
     Route: 065
     Dates: start: 20160229, end: 20180301
  2. BRENTUXIMAB VEDOTIN-MPI [Suspect]
     Active Substance: BRENTUXIMAB VEDOTIN
     Indication: HODGKIN^S DISEASE
     Dosage: 113.4 MG, Q21D
     Route: 042
     Dates: start: 20160229, end: 20160802

REACTIONS (1)
  - Dysaesthesia [Recovering/Resolving]

NARRATIVE: CASE EVENT DATE: 20160823
